FAERS Safety Report 8777192 (Version 2)
Quarter: 2012Q4

REPORT INFORMATION
  Report Type: 
  Country: DE (occurrence: DE)
  Receive Date: 20120911
  Receipt Date: 20120911
  Transmission Date: 20130627
  Serious: Yes (Hospitalization)
  Sender: FDA-Public Use
  Company Number: DE-009507513-1208DEU008721

PATIENT

DRUGS (4)
  1. TALOXA [Suspect]
     Indication: PARTIAL SEIZURES
     Dosage: 1800 mg, bid
     Route: 048
     Dates: start: 201109, end: 2012
  2. TALOXA [Suspect]
     Dosage: UNK
     Dates: start: 2012
  3. OXCARBAZEPINE [Concomitant]
     Indication: PARTIAL SEIZURES
     Dosage: 750 mg, bid
     Route: 048
  4. PREGABALIN [Concomitant]
     Indication: PARTIAL SEIZURES
     Dosage: 200 mg, bid
     Route: 048

REACTIONS (1)
  - Arthralgia [Recovering/Resolving]
